FAERS Safety Report 25527663 (Version 1)
Quarter: 2025Q3

REPORT INFORMATION
  Report Type: Spontaneous
  Country: TR (occurrence: TR)
  Receive Date: 20250708
  Receipt Date: 20250708
  Transmission Date: 20251021
  Serious: Yes (Other)
  Sender: ALKEM
  Company Number: TR-ALKEM LABORATORIES LIMITED-TR-ALKEM-2025-07056

PATIENT
  Age: 19 Year
  Sex: Female

DRUGS (1)
  1. ARIPIPRAZOLE [Suspect]
     Active Substance: ARIPIPRAZOLE
     Indication: Obsessive-compulsive disorder
     Dosage: 10 MILLIGRAM, QD
     Route: 065

REACTIONS (3)
  - Acute myopia [Recovering/Resolving]
  - Pseudomyopia [Recovering/Resolving]
  - Diplopia [Recovering/Resolving]
